FAERS Safety Report 7658992-3 (Version None)
Quarter: 2011Q3

REPORT INFORMATION
  Report Type: 
  Country: None (occurrence: None)
  Receive Date: 20110805
  Receipt Date: 20110725
  Transmission Date: 20111222
  Serious: Yes (Other)
  Sender: FDA-Public Use
  Company Number: CA-ELI_LILLY_AND_COMPANY-CA201107007325

PATIENT
  Age: 7 Year
  Sex: Male

DRUGS (1)
  1. ZYPREXA [Suspect]
     Dosage: 5 MG, SINGLE
     Route: 048

REACTIONS (5)
  - SOMNOLENCE [None]
  - ACCIDENTAL EXPOSURE [None]
  - DIZZINESS [None]
  - BLINDNESS [None]
  - EXPIRED DRUG ADMINISTERED [None]
